FAERS Safety Report 5396915-0 (Version None)
Quarter: 2007Q3

REPORT INFORMATION
  Report Type: 
  Country: None (occurrence: None)
  Receive Date: 20070725
  Receipt Date: 20070719
  Transmission Date: 20080115
  Serious: Yes (Other)
  Sender: FDA-Public Use
  Company Number: US-ASTRAZENECA-2007UW17172

PATIENT
  Age: 68 Year

DRUGS (3)
  1. SEROQUEL [Suspect]
     Route: 048
  2. DEPAKOTE [Concomitant]
  3. OTHERS - UNKNOWN [Concomitant]

REACTIONS (1)
  - THROMBOCYTOPENIA [None]
